FAERS Safety Report 21973042 (Version 2)
Quarter: 2023Q2

REPORT INFORMATION
  Report Type: Spontaneous
  Country: FR (occurrence: FR)
  Receive Date: 20230209
  Receipt Date: 20230601
  Transmission Date: 20230722
  Serious: Yes (Life-Threatening)
  Sender: FDA-Public Use
  Company Number: None

PATIENT
  Age: 24 Year
  Sex: Male
  Weight: 81 kg

DRUGS (10)
  1. DEXAMETHASONE [Suspect]
     Active Substance: DEXAMETHASONE
     Indication: General anaesthesia
     Dosage: 12 MG, 1 TOTAL (20 MG/5 ML)
     Route: 042
     Dates: start: 20221208, end: 20221208
  2. PROPOFOL LIPURO [Suspect]
     Active Substance: PROPOFOL
     Indication: General anaesthesia
     Dosage: 400 MILLIGRAM, 1 TOTAL
     Route: 042
     Dates: start: 20221208, end: 20221208
  3. KETOPROFEN [Suspect]
     Active Substance: KETOPROFEN
     Indication: General anaesthesia
     Dosage: 50 MG, 1 TOTAL (100 MG/2 ML)
     Route: 042
     Dates: start: 20221208, end: 20221208
  4. LIDOCAINE [Suspect]
     Active Substance: LIDOCAINE
     Indication: Wisdom teeth removal
     Dosage: 120 MILLIGRAM, 1 TOTAL
     Route: 042
     Dates: start: 20221208, end: 20221208
  5. PERFALGAN [Suspect]
     Active Substance: ACETAMINOPHEN
     Indication: Perioperative analgesia
     Dosage: 1 GRAM, 1 TOTAL
     Route: 042
     Dates: start: 20221208, end: 20221208
  6. NEFOPAM [Suspect]
     Active Substance: NEFOPAM
     Indication: General anaesthesia
     Dosage: 20 MG, 1 TOTAL (20 MG/2 ML)
     Route: 042
     Dates: start: 20221208, end: 20221208
  7. ALFENTANIL HYDROCHLORIDE [Suspect]
     Active Substance: ALFENTANIL HYDROCHLORIDE
     Indication: General anaesthesia
     Dosage: 5000 UG, 1 TOTAL (1 MG (0.5 MG/ML)
     Route: 042
     Dates: start: 20221208, end: 20221208
  8. CHLORHEXIDINE [Suspect]
     Active Substance: CHLORHEXIDINE
     Indication: Prophylaxis
     Dosage: UNK, DISINFECTION IN OPERATING CONTEXT
     Route: 004
     Dates: start: 20221208, end: 20221208
  9. Celestene [Concomitant]
     Indication: Antiinflammatory therapy
     Dosage: 3 MILLIGRAM, 1 TOTAL
     Route: 048
     Dates: start: 20221208, end: 20221208
  10. AMOXICILLIN [Concomitant]
     Active Substance: AMOXICILLIN
     Indication: Antibiotic prophylaxis
     Dosage: 3 GRAM, QD
     Route: 048
     Dates: start: 20221208, end: 20221214

REACTIONS (1)
  - Anaphylactic shock [Recovered/Resolved]

NARRATIVE: CASE EVENT DATE: 20221208
